FAERS Safety Report 25188053 (Version 1)
Quarter: 2025Q2

REPORT INFORMATION
  Report Type: Spontaneous
  Country: JP (occurrence: JP)
  Receive Date: 20250411
  Receipt Date: 20250411
  Transmission Date: 20250716
  Serious: Yes (Other)
  Sender: TAKEDA
  Company Number: JP-TAKEDA-2025TJP003632

PATIENT
  Age: 20 Year
  Sex: Female

DRUGS (2)
  1. INTUNIV [Suspect]
     Active Substance: GUANFACINE HYDROCHLORIDE
     Indication: Product used for unknown indication
  2. RISPERIDONE [Suspect]
     Active Substance: RISPERIDONE
     Indication: Product used for unknown indication

REACTIONS (5)
  - Cardiogenic shock [Unknown]
  - Torsade de pointes [Recovering/Resolving]
  - Ventricular tachycardia [Recovering/Resolving]
  - Toxicity to various agents [Unknown]
  - Overdose [Unknown]
